FAERS Safety Report 5702061-6 (Version None)
Quarter: 2008Q2

REPORT INFORMATION
  Report Type: 
  Country: None (occurrence: None)
  Receive Date: 20080411
  Receipt Date: 20070705
  Transmission Date: 20081010
  Serious: No
  Sender: FDA-Public Use
  Company Number: US-ABBOTT-07P-163-0373963-00

PATIENT
  Sex: Female
  Weight: 74.91 kg

DRUGS (5)
  1. DEPAKOTE [Suspect]
     Indication: BIPOLAR DISORDER
     Route: 048
     Dates: start: 20051201
  2. DEPAKOTE [Suspect]
     Route: 048
  3. ESCITALOPRAM OXALATE [Concomitant]
     Indication: DEPRESSION
     Route: 048
     Dates: start: 20060101
  4. OBETROL [Concomitant]
     Indication: ATTENTION DEFICIT/HYPERACTIVITY DISORDER
     Route: 048
  5. RESTERIL [Concomitant]
     Indication: ANXIETY
     Route: 048

REACTIONS (2)
  - NAUSEA [None]
  - WEIGHT INCREASED [None]
